FAERS Safety Report 24360528 (Version 1)
Quarter: 2024Q3

REPORT INFORMATION
  Report Type: Spontaneous
  Country: IT (occurrence: IT)
  Receive Date: 20240925
  Receipt Date: 20240925
  Transmission Date: 20241016
  Serious: Yes (Hospitalization, Other)
  Sender: AUROBINDO
  Company Number: IT-AMGEN-ITASP2019008210

PATIENT
  Age: 80 Year
  Sex: Male

DRUGS (5)
  1. CINACALCET [Suspect]
     Active Substance: CINACALCET
     Indication: Hyperparathyroidism primary
     Dosage: 60 MILLIGRAM, ONCE A DAY (30 MG, BID)
     Route: 065
     Dates: start: 201601
  2. CINACALCET [Suspect]
     Active Substance: CINACALCET
     Dosage: 180 MILLIGRAM, ONCE A DAY (60 MG, TID)
     Route: 065
     Dates: end: 201706
  3. ALFUZOSIN [Concomitant]
     Active Substance: ALFUZOSIN
     Indication: Product used for unknown indication
     Dosage: UNK
     Route: 065
  4. VALSARTAN [Concomitant]
     Active Substance: VALSARTAN
     Indication: Product used for unknown indication
     Dosage: UNK
     Route: 065
  5. CHOLECALCIFEROL [Concomitant]
     Active Substance: CHOLECALCIFEROL
     Indication: Product used for unknown indication
     Dosage: UNK
     Route: 065

REACTIONS (2)
  - Infarction [Unknown]
  - Tetany [Recovered/Resolved]
